FAERS Safety Report 5190247-1 (Version None)
Quarter: 2006Q4

REPORT INFORMATION
  Report Type: 
  Country: None (occurrence: None)
  Receive Date: 20061222
  Receipt Date: 20061212
  Transmission Date: 20070319
  Serious: Yes (Other)
  Sender: FDA-Public Use
  Company Number: PHBS2006SE19160

PATIENT
  Age: 78 Year
  Sex: Male

DRUGS (3)
  1. AREDIA [Suspect]
     Indication: MULTIPLE MYELOMA
     Dates: start: 20050609
  2. THALIDOMIDE [Concomitant]
     Dates: start: 20050101
  3. ZOMETA [Suspect]
     Indication: MULTIPLE MYELOMA
     Dates: start: 20050609

REACTIONS (1)
  - OSTEONECROSIS [None]
